FAERS Safety Report 8745990 (Version 2)
Quarter: 2013Q4

REPORT INFORMATION
  Report Type: Spontaneous
  Country: US (occurrence: US)
  Receive Date: 20120827
  Receipt Date: 20131003
  Transmission Date: 20140711
  Serious: No
  Sender: FDA-Public Use
  Company Number: US-009507513-1208USA008308

PATIENT
  Age: 30 Year
  Sex: Female

DRUGS (2)
  1. MAXALT [Suspect]
     Indication: MIGRAINE
     Dosage: 10 MG, UNK
     Route: 048
     Dates: start: 201206
  2. TOPAMAX [Concomitant]
     Dosage: UNK

REACTIONS (2)
  - Tunnel vision [Recovered/Resolved]
  - Accident at home [Recovered/Resolved]
